FAERS Safety Report 14029716 (Version 12)
Quarter: 2019Q2

REPORT INFORMATION
  Report Type: Spontaneous
  Country: US (occurrence: US)
  Receive Date: 20171002
  Receipt Date: 20190626
  Transmission Date: 20190711
  Serious: No
  Sender: FDA-Public Use
  Company Number: US-JAZZ-2017-US-011272

PATIENT
  Sex: Male
  Weight: 129.2 kg

DRUGS (52)
  1. MELATONIN [Concomitant]
     Active Substance: MELATONIN
  2. ALPHA LIPOIC ACID [Concomitant]
     Active Substance: .ALPHA.-LIPOIC ACID
  3. OMEGA-3 FISH OIL [Concomitant]
     Active Substance: FISH OIL\OMEGA-3 FATTY ACIDS
  4. SELENIUM [Concomitant]
     Active Substance: SELENIUM
  5. CYCLOBENZAPRINE. [Concomitant]
     Active Substance: CYCLOBENZAPRINE
     Indication: MUSCLE RELAXANT THERAPY
  6. HYDROXYZINE HCL [Concomitant]
     Active Substance: HYDROXYZINE HYDROCHLORIDE
  7. HYDROMORPHONE [Concomitant]
     Active Substance: HYDROMORPHONE
  8. CITALOPRAM [Concomitant]
     Active Substance: CITALOPRAM HYDROBROMIDE
  9. VICODIN ES [Concomitant]
     Active Substance: ACETAMINOPHEN\HYDROCODONE BITARTRATE
  10. COENZYME Q10 [Concomitant]
     Active Substance: UBIDECARENONE
  11. MI-ACID [Concomitant]
  12. GLIPIZIDE. [Concomitant]
     Active Substance: GLIPIZIDE
  13. PARACETAMOL [Concomitant]
     Active Substance: ACETAMINOPHEN
     Indication: INFLAMMATION
  14. METRONIDAZOLE. [Concomitant]
     Active Substance: METRONIDAZOLE
  15. BYETTA [Concomitant]
     Active Substance: EXENATIDE
  16. XYREM [Suspect]
     Active Substance: SODIUM OXYBATE
     Dosage: 4.5 G, QD SECOND DOSE
     Route: 048
  17. IBUPROFEN. [Concomitant]
     Active Substance: IBUPROFEN
     Indication: INFLAMMATION
  18. NOVOLOG [Concomitant]
     Active Substance: INSULIN ASPART
  19. CONCERTA [Concomitant]
     Active Substance: METHYLPHENIDATE HYDROCHLORIDE
  20. LIDOCAINE W/PRILOCAINE [Concomitant]
     Active Substance: LIDOCAINE\PRILOCAINE
  21. HYDROCHLOROTHIAZIDE. [Concomitant]
     Active Substance: HYDROCHLOROTHIAZIDE
  22. SILYBUM MARIANUM [Concomitant]
     Active Substance: DIETARY SUPPLEMENT\HERBALS\MILK THISTLE
  23. XYREM [Suspect]
     Active Substance: SODIUM OXYBATE
     Indication: SLEEP DISORDER
     Dosage: DOSE ADJUSTMENTS
     Route: 048
     Dates: start: 201412, end: 20170612
  24. XYREM [Suspect]
     Active Substance: SODIUM OXYBATE
     Dosage: 12 G, QD, FIRST DOSE
     Route: 048
  25. XYREM [Suspect]
     Active Substance: SODIUM OXYBATE
     Dosage: 6 G, QD, SECOND DOSE
     Route: 048
  26. TIZANIDINE. [Concomitant]
     Active Substance: TIZANIDINE
     Indication: MUSCLE RELAXANT THERAPY
  27. CLONAZEPAM. [Concomitant]
     Active Substance: CLONAZEPAM
  28. TEMAZEPAM. [Concomitant]
     Active Substance: TEMAZEPAM
  29. TESTOSTERONE CYPIONATE. [Concomitant]
     Active Substance: TESTOSTERONE CYPIONATE
  30. ECHINACEA PURPUREA [Concomitant]
     Active Substance: ECHINACEA PURPUREA
  31. XYREM [Suspect]
     Active Substance: SODIUM OXYBATE
     Dosage: 9 G, QD
     Route: 048
     Dates: start: 2017
  32. XYREM [Suspect]
     Active Substance: SODIUM OXYBATE
     Dosage: 4.5 G, BID
     Route: 048
  33. TRAZODONE [Suspect]
     Active Substance: TRAZODONE HYDROCHLORIDE
     Indication: INSOMNIA
  34. CITALOPRAM [Concomitant]
     Active Substance: CITALOPRAM HYDROBROMIDE
     Indication: ANXIETY
  35. TRAMADOL HCL [Concomitant]
     Active Substance: TRAMADOL HYDROCHLORIDE
  36. SODIUM BICARBONATE. [Concomitant]
     Active Substance: SODIUM BICARBONATE
  37. VITAMIN D3 [Concomitant]
     Active Substance: CHOLECALCIFEROL
  38. HOLY BASIL [Concomitant]
  39. XYREM [Suspect]
     Active Substance: SODIUM OXYBATE
     Dosage: 9 G, QD FIRST DOSE
     Route: 048
  40. LANTUS [Concomitant]
     Active Substance: INSULIN GLARGINE
     Indication: TYPE 2 DIABETES MELLITUS
  41. DOXYCYCLINE. [Concomitant]
     Active Substance: DOXYCYCLINE
  42. LIDOCAINE HCL [Concomitant]
     Active Substance: LIDOCAINE HYDROCHLORIDE
  43. ALEVE [Concomitant]
     Active Substance: NAPROXEN SODIUM
  44. MODAFINIL. [Concomitant]
     Active Substance: MODAFINIL
  45. ROZEREM [Concomitant]
     Active Substance: RAMELTEON
  46. L-THREONINE [Concomitant]
  47. XYREM [Suspect]
     Active Substance: SODIUM OXYBATE
     Indication: CIRCADIAN RHYTHM SLEEP DISORDER
     Dosage: 2.25G, BID
     Route: 048
     Dates: start: 201411, end: 201412
  48. CITALOPRAM [Concomitant]
     Active Substance: CITALOPRAM HYDROBROMIDE
     Indication: SLEEP DISORDER
  49. GABAPENTIN. [Concomitant]
     Active Substance: GABAPENTIN
     Indication: DIABETIC FOOT
  50. OMEPRAZOLE. [Concomitant]
     Active Substance: OMEPRAZOLE
  51. ACETYLSALICYLIC ACID [Concomitant]
     Active Substance: ASPIRIN
  52. PSYLLIUM FIBRE [Concomitant]

REACTIONS (3)
  - Cognitive disorder [Unknown]
  - Drug ineffective [Unknown]
  - Treatment noncompliance [Unknown]
